FAERS Safety Report 15817763 (Version 1)
Quarter: 2019Q1

REPORT INFORMATION
  Report Type: Spontaneous
  Country: US (occurrence: US)
  Receive Date: 20190113
  Receipt Date: 20190113
  Transmission Date: 20190417
  Serious: No
  Sender: FDA-Public Use
  Company Number: US-TEVA-2018-US-990060

PATIENT
  Sex: Female

DRUGS (3)
  1. PROAIR HFA [Concomitant]
     Active Substance: ALBUTEROL SULFATE
     Route: 065
  2. QVAR [Concomitant]
     Active Substance: BECLOMETHASONE DIPROPIONATE
  3. QVAR REDIHALER [Suspect]
     Active Substance: BECLOMETHASONE DIPROPIONATE
     Indication: ASTHMA
     Route: 065
     Dates: start: 20181210

REACTIONS (4)
  - Dry throat [Unknown]
  - Cough [Unknown]
  - Device difficult to use [Unknown]
  - Dysphonia [Unknown]
